FAERS Safety Report 20899228 (Version 4)
Quarter: 2024Q2

REPORT INFORMATION
  Report Type: Report from Study
  Country: CA (occurrence: CA)
  Receive Date: 20220601
  Receipt Date: 20240624
  Transmission Date: 20240716
  Serious: Yes (Hospitalization)
  Sender: FDA-Public Use
  Company Number: CA-ROCHE-2400127

PATIENT
  Age: 47 Year
  Sex: Male

DRUGS (11)
  1. OCREVUS [Suspect]
     Active Substance: OCRELIZUMAB
     Indication: Relapsing-remitting multiple sclerosis
     Dosage: 300 MG AT DAY 0 AND 14, THEN 600 MG EVERY 6 MONTH
     Route: 042
     Dates: start: 20190828
  2. OCREVUS [Suspect]
     Active Substance: OCRELIZUMAB
     Route: 042
  3. CLONAZEPAM [Suspect]
     Active Substance: CLONAZEPAM
     Indication: Product used for unknown indication
     Route: 065
  4. CORTISONE [Suspect]
     Active Substance: CORTISONE
     Indication: Product used for unknown indication
     Route: 065
  5. SOLU-MEDROL [Suspect]
     Active Substance: METHYLPREDNISOLONE SODIUM SUCCINATE
     Indication: Product used for unknown indication
     Route: 065
  6. BUPROPION [Concomitant]
     Active Substance: BUPROPION
  7. DULOXETINE [Concomitant]
     Active Substance: DULOXETINE
  8. FENOFIBRATE [Concomitant]
     Active Substance: FENOFIBRATE
  9. SERTRALINE [Concomitant]
     Active Substance: SERTRALINE HYDROCHLORIDE
  10. QUETIAPINE [Concomitant]
     Active Substance: QUETIAPINE
  11. FENOFIBRATE [Concomitant]
     Active Substance: FENOFIBRATE

REACTIONS (18)
  - Depression [Recovered/Resolved]
  - Infusion related reaction [Recovered/Resolved]
  - Fatigue [Not Recovered/Not Resolved]
  - Insomnia [Unknown]
  - Diarrhoea [Unknown]
  - Pyrexia [Recovered/Resolved]
  - Nausea [Not Recovered/Not Resolved]
  - Abdominal distension [Not Recovered/Not Resolved]
  - Fatigue [Unknown]
  - Abdominal pain upper [Unknown]
  - Headache [Unknown]
  - Influenza like illness [Recovering/Resolving]
  - Myalgia [Unknown]
  - Abdominal pain [Unknown]
  - Flatulence [Unknown]
  - Eye pain [Recovering/Resolving]
  - Migraine [Recovering/Resolving]
  - COVID-19 [Unknown]

NARRATIVE: CASE EVENT DATE: 20190828
